FAERS Safety Report 4650419-9 (Version None)
Quarter: 2005Q2

REPORT INFORMATION
  Report Type: 
  Country: None (occurrence: None)
  Receive Date: 20050429
  Receipt Date: 20050404
  Transmission Date: 20051028
  Serious: Yes (Hospitalization, Other)
  Sender: FDA-Public Use
  Company Number: 2005054968

PATIENT
  Sex: 0

DRUGS (1)
  1. PROSTIN VR PEDIATRIC [Suspect]
     Indication: CARDIAC DISORDER

REACTIONS (1)
  - BARTTER'S SYNDROME [None]
